FAERS Safety Report 9929363 (Version 1)
Quarter: 2014Q1

REPORT INFORMATION
  Report Type: Spontaneous
  Country: CA (occurrence: CA)
  Receive Date: 20140227
  Receipt Date: 20140227
  Transmission Date: 20141002
  Serious: Yes (Other)
  Sender: FDA-Public Use
  Company Number: CA-B.I. PHARMACEUTICALS,INC./RIDGEFIELD-2014-BI-07601CN

PATIENT
  Age: 54 Year
  Sex: Female

DRUGS (11)
  1. SPIRIVA [Suspect]
     Indication: PRODUCT USED FOR UNKNOWN INDICATION
     Dosage: 1 ANZ
     Route: 055
  2. ADVAIR DISKUS [Suspect]
     Indication: PRODUCT USED FOR UNKNOWN INDICATION
     Dosage: 2 ANZ
     Route: 065
  3. APO-SALVENT [Suspect]
     Indication: PRODUCT USED FOR UNKNOWN INDICATION
     Dosage: 8 ANZ
     Route: 055
  4. AMITRIPTYLINE [Concomitant]
     Route: 065
  5. FUROSEMIDE [Concomitant]
     Route: 065
  6. OXAZEPAM [Concomitant]
     Route: 065
  7. PANTOPRAZOLE [Concomitant]
     Route: 065
  8. RANITIDINE [Concomitant]
     Route: 065
  9. SOFLAX [Concomitant]
     Route: 065
  10. TRANSDERMAL NICOTINE PATCH [Concomitant]
     Dosage: FORMULATION: TRANSDERMAL PATCH
     Route: 065
  11. TYLENOL [Concomitant]
     Route: 065

REACTIONS (2)
  - Drug ineffective [Recovered/Resolved]
  - Oral discomfort [Recovered/Resolved]
